FAERS Safety Report 20981753 (Version 1)
Quarter: 2022Q2

REPORT INFORMATION
  Report Type: Report from Study
  Country: CA (occurrence: CA)
  Receive Date: 20220620
  Receipt Date: 20220620
  Transmission Date: 20220720
  Serious: Yes (Hospitalization)
  Sender: FDA-Public Use
  Company Number: CA-NOVARTISPH-NVSC2019CA078179

PATIENT
  Age: 29 Year
  Sex: Female

DRUGS (2)
  1. ALPELISIB [Suspect]
     Active Substance: ALPELISIB
     Indication: PIK3CA related overgrowth spectrum
     Dosage: 200 MG, QD
     Route: 048
     Dates: start: 20191119
  2. ALPELISIB [Suspect]
     Active Substance: ALPELISIB
     Dosage: 5 DOSAGE FORM (5 TABLETS)
     Route: 065

REACTIONS (4)
  - Pulmonary embolism [Unknown]
  - Diarrhoea [Recovered/Resolved]
  - Diarrhoea [Not Recovered/Not Resolved]
  - Product dose omission issue [Unknown]

NARRATIVE: CASE EVENT DATE: 20191125
